FAERS Safety Report 5536771-0 (Version None)
Quarter: 2007Q4

REPORT INFORMATION
  Report Type: 
  Country: None (occurrence: None)
  Receive Date: 20071206
  Receipt Date: 20070511
  Transmission Date: 20080405
  Serious: Yes (Hospitalization)
  Sender: FDA-Public Use
  Company Number: US-AMGEN-STX214716

PATIENT
  Sex: Male

DRUGS (11)
  1. ENBREL [Suspect]
     Indication: PSORIASIS
     Route: 058
     Dates: start: 20050101, end: 20070405
  2. UNIPHYL [Concomitant]
  3. COMBIVENT [Concomitant]
  4. ADVAIR DISKUS 100/50 [Concomitant]
  5. ZOCOR [Concomitant]
  6. TOPROL-XL [Concomitant]
  7. ISOSORBIDE DINITRATE [Concomitant]
  8. PAXIL [Concomitant]
  9. FLONASE [Concomitant]
  10. GLUCOPHAGE [Concomitant]
  11. AVANDIA [Concomitant]

REACTIONS (1)
  - LUNG NEOPLASM MALIGNANT [None]
